FAERS Safety Report 15768459 (Version 2)
Quarter: 2019Q1

REPORT INFORMATION
  Report Type: Report from Study
  Country: None (occurrence: GB)
  Receive Date: 20181227
  Receipt Date: 20190110
  Transmission Date: 20190417
  Serious: Yes (Other)
  Sender: FDA-Public Use
  Company Number: GB-ABBVIE-18K-167-2604014-00

PATIENT
  Sex: Female

DRUGS (2)
  1. PIVMECILLINAM [Suspect]
     Active Substance: AMDINOCILLIN PIVOXIL
     Indication: PAIN
     Route: 065
  2. HUMIRA [Suspect]
     Active Substance: ADALIMUMAB
     Indication: CROHN^S DISEASE
     Dosage: 0.4ML
     Route: 058
     Dates: start: 20180111

REACTIONS (11)
  - Gait disturbance [Unknown]
  - Cystitis noninfective [Not Recovered/Not Resolved]
  - Asthenia [Not Recovered/Not Resolved]
  - Hernia [Not Recovered/Not Resolved]
  - Obstruction [Recovered/Resolved]
  - Dizziness [Not Recovered/Not Resolved]
  - Pain [Not Recovered/Not Resolved]
  - Pruritus [Not Recovered/Not Resolved]
  - Urticaria [Not Recovered/Not Resolved]
  - Haemorrhage [Recovered/Resolved]
  - Hypersensitivity [Not Recovered/Not Resolved]

NARRATIVE: CASE EVENT DATE: 2018
